FAERS Safety Report 4591108-9 (Version None)
Quarter: 2005Q1

REPORT INFORMATION
  Report Type: 
  Country: None (occurrence: None)
  Receive Date: 20050223
  Receipt Date: 20050223
  Transmission Date: 20050727
  Serious: Yes (Life-Threatening, Hospitalization)
  Sender: FDA-Public Use
  Company Number: None

PATIENT
  Age: 27 Year
  Sex: Male
  Weight: 76 kg

DRUGS (5)
  1. RISPERDAL [Suspect]
     Indication: SCHIZOPHRENIA
     Dosage: 1 MG QHS ORAL
     Route: 048
     Dates: start: 20040922, end: 20050208
  2. BENZTROPINE [Suspect]
     Indication: EXTRAPYRAMIDAL DISORDER
     Dosage: 1 MG BID ORAL
     Route: 048
     Dates: start: 20040922, end: 20050208
  3. TOPAMAX [Concomitant]
  4. KEPPRA [Concomitant]
  5. ZOLOFT [Concomitant]

REACTIONS (3)
  - METABOLIC ACIDOSIS [None]
  - NEUROLEPTIC MALIGNANT SYNDROME [None]
  - RHABDOMYOLYSIS [None]
